FAERS Safety Report 10255293 (Version 1)
Quarter: 2014Q2

REPORT INFORMATION
  Report Type: Spontaneous
  Country: US (occurrence: US)
  Receive Date: 20140624
  Receipt Date: 20140624
  Transmission Date: 20141212
  Serious: No
  Sender: FDA-Public Use
  Company Number: US-PFIZER INC-2014169873

PATIENT
  Age: 79 Year
  Sex: Female
  Weight: 65.76 kg

DRUGS (2)
  1. LYRICA [Suspect]
     Indication: FIBROMYALGIA
     Dosage: 75 MG, DAILY
  2. LYRICA [Suspect]
     Dosage: 50 MG, DAILY

REACTIONS (2)
  - Pain [Unknown]
  - Activities of daily living impaired [Unknown]
